FAERS Safety Report 5376310-0 (Version None)
Quarter: 2007Q2

REPORT INFORMATION
  Report Type: 
  Country: None (occurrence: None)
  Receive Date: 20070628
  Receipt Date: 20070615
  Transmission Date: 20071010
  Serious: Yes (Life-Threatening, Hospitalization, Other)
  Sender: FDA-Public Use
  Company Number: T200700481

PATIENT
  Age: 42 Year
  Sex: Male
  Weight: 62 kg

DRUGS (1)
  1. OPTIRAY 350 [Suspect]
     Indication: ARTERIOGRAM CORONARY
     Dosage: 20 ML, SINGLE, INTRA-ARTERIAL
     Route: 013
     Dates: start: 20070423, end: 20070423

REACTIONS (11)
  - BRADYCARDIA [None]
  - CONTRAST MEDIA REACTION [None]
  - EPISTAXIS [None]
  - GLOMERULAR FILTRATION RATE ABNORMAL [None]
  - GRAND MAL CONVULSION [None]
  - HAEMODIALYSIS [None]
  - LOSS OF CONSCIOUSNESS [None]
  - RENAL FAILURE CHRONIC [None]
  - RENAL TUBULAR NECROSIS [None]
  - RESPIRATORY FAILURE [None]
  - THROMBOCYTOPENIA [None]
